FAERS Safety Report 7658114-9 (Version None)
Quarter: 2011Q3

REPORT INFORMATION
  Report Type: 
  Country: None (occurrence: None)
  Receive Date: 20110805
  Receipt Date: 20110726
  Transmission Date: 20111222
  Serious: Yes (Other)
  Sender: FDA-Public Use
  Company Number: CA-JNJFOC-20110500859

PATIENT
  Sex: Female
  Weight: 103 kg

DRUGS (1)
  1. REMICADE [Suspect]
     Indication: RHEUMATOID ARTHRITIS
     Dosage: 100MG/VIAL
     Route: 042
     Dates: start: 20071201

REACTIONS (2)
  - BEHCET'S SYNDROME [None]
  - VISUAL ACUITY REDUCED [None]
